FAERS Safety Report 9366002 (Version 2)
Quarter: 2013Q3

REPORT INFORMATION
  Report Type: Spontaneous
  Country: US (occurrence: US)
  Receive Date: 20130625
  Receipt Date: 20130703
  Transmission Date: 20140515
  Serious: No
  Sender: FDA-Public Use
  Company Number: US-PFIZER INC-2013187558

PATIENT
  Age: 83 Year
  Sex: Male

DRUGS (11)
  1. NITROSTAT [Suspect]
     Indication: ANGINA PECTORIS
     Dosage: 0.4 MG, 1X/DAY (ONE EVEY MORNING)
     Route: 060
     Dates: start: 2007
  2. RENVELA [Concomitant]
     Dosage: UNK
  3. NOVOLOG [Concomitant]
     Dosage: UNK
  4. VICODIN [Concomitant]
     Dosage: UNK
  5. AMLODIPINE [Concomitant]
     Dosage: UNK
  6. HUMULIN R [Concomitant]
     Dosage: UNK
  7. GABAPENTIN [Concomitant]
     Dosage: UNK
  8. PLAVIX [Concomitant]
     Dosage: UNK
  9. LOSARTAN [Concomitant]
     Dosage: UNK
  10. RANEXA [Concomitant]
     Dosage: UNK
  11. IMDUR [Concomitant]
     Dosage: UNK

REACTIONS (3)
  - Product solubility abnormal [Unknown]
  - Drug effect delayed [Unknown]
  - Drug ineffective [Unknown]
